FAERS Safety Report 4396720-8 (Version None)
Quarter: 2004Q3

REPORT INFORMATION
  Report Type: 
  Country: None (occurrence: None)
  Receive Date: 20040713
  Receipt Date: 20040713
  Transmission Date: 20050211
  Serious: Yes (Hospitalization)
  Sender: FDA-Public Use
  Company Number: None

PATIENT
  Age: 84 Year
  Sex: Male
  Weight: 76.1 kg

DRUGS (1)
  1. PIPERACILLIN/TAZOBACTAM [Suspect]
     Indication: OSTEOMYELITIS
     Dosage: 9G, 2.25Q6H, INTRAVEN
     Route: 042
     Dates: start: 20040505, end: 20040617

REACTIONS (1)
  - NEPHRITIS INTERSTITIAL [None]
